FAERS Safety Report 6862042-6 (Version None)
Quarter: 2010Q3

REPORT INFORMATION
  Report Type: 
  Country: None (occurrence: None)
  Receive Date: 20100721
  Receipt Date: 20100707
  Transmission Date: 20110219
  Serious: Yes (Hospitalization)
  Sender: FDA-Public Use
  Company Number: GB-RANBAXY-2010RR-32532

PATIENT
  Age: 89 Year
  Sex: Male

DRUGS (6)
  1. PARACETAMOL [Suspect]
     Indication: BACK PAIN
     Dosage: 1 G, QID
  2. CYPROTERONE ACETATE [Concomitant]
     Indication: METASTASES TO SPINE
  3. DEXTROSE [Concomitant]
  4. GOSERELIN [Concomitant]
     Indication: METASTASES TO SPINE
     Route: 042
  5. SODIUM CHLORIDE [Concomitant]
     Route: 042
  6. PARACETAMOL [Concomitant]

REACTIONS (1)
  - HYPERNATRAEMIA [None]
